FAERS Safety Report 22647763 (Version 1)
Quarter: 2023Q2

REPORT INFORMATION
  Report Type: Report from Study
  Country: US (occurrence: None)
  Receive Date: 20230628
  Receipt Date: 20230628
  Transmission Date: 20230722
  Serious: Yes (Hospitalization)
  Sender: FDA-Public Use
  Company Number: 2023A146736

PATIENT
  Sex: Female
  Weight: 75.3 kg

DRUGS (8)
  1. CALQUENCE [Suspect]
     Active Substance: ACALABRUTINIB
     Indication: Chronic lymphocytic leukaemia
     Route: 048
  2. PANTOPRAZOLE [Concomitant]
     Active Substance: PANTOPRAZOLE
  3. PRAVASTATIN [Concomitant]
     Active Substance: PRAVASTATIN
  4. ESCITALOPRAM [Concomitant]
     Active Substance: ESCITALOPRAM OXALATE
  5. GABAPENTIN [Concomitant]
     Active Substance: GABAPENTIN
  6. FOSAMAX [Concomitant]
     Active Substance: ALENDRONATE SODIUM
  7. ALBUTEROL [Concomitant]
     Active Substance: ALBUTEROL
  8. CALCIUM-FOLIC ACID [Concomitant]

REACTIONS (1)
  - Hypersensitivity [Unknown]
